FAERS Safety Report 14832759 (Version 2)
Quarter: 2018Q2

REPORT INFORMATION
  Report Type: Spontaneous
  Country: US (occurrence: US)
  Receive Date: 20180501
  Receipt Date: 20180525
  Transmission Date: 20180711
  Serious: No
  Sender: FDA-Public Use
  Company Number: US-GLAXOSMITHKLINE-US2018064150

PATIENT
  Age: 66 Year
  Sex: Female
  Weight: 66 kg

DRUGS (2)
  1. EQUATE NICOTINE [Suspect]
     Active Substance: NICOTINE
     Indication: SMOKING CESSATION THERAPY
     Dosage: 21 MG, 1D
     Dates: start: 20180312
  2. EQUATE NICOTINE [Suspect]
     Active Substance: NICOTINE
     Dosage: 21 MG, UNK

REACTIONS (3)
  - Application site exfoliation [Recovering/Resolving]
  - Product quality issue [Unknown]
  - Application site dryness [Recovering/Resolving]

NARRATIVE: CASE EVENT DATE: 20180409
